FAERS Safety Report 21022040 (Version 1)
Quarter: 2022Q2

REPORT INFORMATION
  Report Type: Report from Study
  Country: KR (occurrence: None)
  Receive Date: 20220629
  Receipt Date: 20220629
  Transmission Date: 20220721
  Serious: Yes (Hospitalization, Other)
  Sender: FDA-Public Use
  Company Number: KR-Eisai Medical Research-EC-2022-117638

PATIENT
  Age: 54 Year
  Sex: Female
  Weight: 60.2 kg

DRUGS (3)
  1. LENVIMA [Suspect]
     Active Substance: LENVATINIB
     Indication: Endometrial cancer
     Route: 048
     Dates: start: 20220503, end: 20220603
  2. KEYTRUDA [Suspect]
     Active Substance: PEMBROLIZUMAB
     Indication: Endometrial cancer
     Route: 041
     Dates: start: 20220503, end: 20220603
  3. DICAMAX [Concomitant]
     Indication: Product used for unknown indication
     Dosage: FREQUENCY UNKNOWN
     Route: 048

REACTIONS (14)
  - Hypertension [Recovering/Resolving]
  - Posterior reversible encephalopathy syndrome [Recovering/Resolving]
  - Platelet count decreased [Recovered/Resolved]
  - Nausea [Recovering/Resolving]
  - Vomiting [Recovered/Resolved]
  - Dyspnoea [Recovering/Resolving]
  - Oedema [Recovering/Resolving]
  - Headache [Recovering/Resolving]
  - Decreased appetite [Recovering/Resolving]
  - Proteinuria [Recovering/Resolving]
  - Constipation [Recovering/Resolving]
  - Hypocalcaemia [Recovered/Resolved]
  - Hypoalbuminaemia [Recovered/Resolved]
  - Hyperlipidaemia [Recovering/Resolving]

NARRATIVE: CASE EVENT DATE: 20220520
